FAERS Safety Report 4906536-9 (Version None)
Quarter: 2006Q1

REPORT INFORMATION
  Report Type: 
  Country: None (occurrence: None)
  Receive Date: 20060209
  Receipt Date: 20060126
  Transmission Date: 20060701
  Serious: Yes (Life-Threatening, Hospitalization)
  Sender: FDA-Public Use
  Company Number: DE-MERCK-0601DEU00121

PATIENT
  Age: 62 Year
  Sex: Male

DRUGS (5)
  1. HYZAAR [Suspect]
     Indication: HYPERTENSION
     Route: 048
     Dates: start: 20001121
  2. AMLODIPINE MESYLATE [Concomitant]
     Indication: HYPERTENSION
     Route: 048
     Dates: start: 20051001
  3. MOXONIDINE [Concomitant]
     Indication: HYPERTENSION
     Route: 048
     Dates: start: 20020105
  4. PORCINE PANCREAS EXTRACT (AS DRUG) [Concomitant]
     Route: 065
     Dates: start: 20050502, end: 20050507
  5. ATORVASTATIN CALCIUM [Concomitant]
     Route: 048

REACTIONS (3)
  - ATRIAL FIBRILLATION [None]
  - GASTRITIS [None]
  - TACHYARRHYTHMIA [None]
